FAERS Safety Report 23774519 (Version 1)
Quarter: 2024Q2

REPORT INFORMATION
  Report Type: Report from Study
  Country: BR (occurrence: BR)
  Receive Date: 20240423
  Receipt Date: 20240423
  Transmission Date: 20240716
  Serious: Yes (Other)
  Sender: FDA-Public Use
  Company Number: BR-AMGEN-BRASL2023145299

PATIENT
  Age: 82 Year
  Sex: Male

DRUGS (2)
  1. VECTIBIX [Suspect]
     Active Substance: PANITUMUMAB
     Indication: Colorectal cancer metastatic
     Dosage: UNK UNK, EVERY 15 DAYS, CATHETER
     Route: 042
     Dates: start: 20230307
  2. VECTIBIX [Suspect]
     Active Substance: PANITUMUMAB
     Dosage: UNK UNK, EVERY 15 DAYS, CATHETER
     Route: 042
     Dates: start: 202303, end: 202404

REACTIONS (5)
  - Malignant peritoneal neoplasm [Recovering/Resolving]
  - Skin burning sensation [Recovering/Resolving]
  - Skin reaction [Recovering/Resolving]
  - Drug ineffective [Recovering/Resolving]
  - Erythema [Recovering/Resolving]

NARRATIVE: CASE EVENT DATE: 20230101
